FAERS Safety Report 11289688 (Version 4)
Quarter: 2015Q4

REPORT INFORMATION
  Report Type: Spontaneous
  Country: US (occurrence: US)
  Receive Date: 20150721
  Receipt Date: 20151130
  Transmission Date: 20160304
  Serious: Yes (Life-Threatening, Other)
  Sender: FDA-Public Use
  Company Number: US-XENOPORT, INC.-2015US006098

PATIENT
  Sex: Female
  Weight: 53 kg

DRUGS (16)
  1. HORIZANT [Suspect]
     Active Substance: GABAPENTIN ENACARBIL
     Indication: NEUROPATHY PERIPHERAL
  2. ASPIRIN                            /00002701/ [Concomitant]
     Active Substance: ASPIRIN
  3. LIDODERM [Concomitant]
     Active Substance: LIDOCAINE
  4. HORIZANT [Suspect]
     Active Substance: GABAPENTIN ENACARBIL
     Indication: RESTLESS LEGS SYNDROME
     Dosage: UNK, ONCE A DAY
     Route: 048
     Dates: start: 201209, end: 201506
  5. NEURONTIN [Suspect]
     Active Substance: GABAPENTIN
     Indication: RESTLESS LEGS SYNDROME
  6. VICODIN [Concomitant]
     Active Substance: ACETAMINOPHEN\HYDROCODONE BITARTRATE
  7. NEURONTIN [Suspect]
     Active Substance: GABAPENTIN
     Indication: OFF LABEL USE
  8. BACLOFEN. [Concomitant]
     Active Substance: BACLOFEN
  9. LYRICA [Suspect]
     Active Substance: PREGABALIN
     Indication: NEUROPATHY PERIPHERAL
  10. GABAPENTIN. [Suspect]
     Active Substance: GABAPENTIN
     Indication: RESTLESS LEGS SYNDROME
  11. LOSARTAN. [Concomitant]
     Active Substance: LOSARTAN
  12. CARVEDILOL. [Concomitant]
     Active Substance: CARVEDILOL
  13. HORIZANT [Suspect]
     Active Substance: GABAPENTIN ENACARBIL
     Indication: FIBROMYALGIA
  14. GABAPENTIN. [Suspect]
     Active Substance: GABAPENTIN
     Indication: NEUROPATHY PERIPHERAL
     Dosage: 600MG ONE OR TWO AT BEDTIME AND ONE AS NEEDED DURING THE DAY
  15. LYRICA [Suspect]
     Active Substance: PREGABALIN
     Indication: RESTLESS LEGS SYNDROME
     Dosage: 50 MG, DAILY
  16. KLONOPIN [Suspect]
     Active Substance: CLONAZEPAM
     Indication: PRODUCT USED FOR UNKNOWN INDICATION

REACTIONS (12)
  - Blood glucose increased [Unknown]
  - Plasma cell myeloma [Unknown]
  - Restless legs syndrome [Unknown]
  - Abnormal dreams [Unknown]
  - Musculoskeletal pain [Unknown]
  - Off label use [Unknown]
  - Metastatic squamous cell carcinoma [Unknown]
  - Condition aggravated [Unknown]
  - Disturbance in attention [Unknown]
  - Myocardial infarction [Unknown]
  - Drug ineffective [Unknown]
  - Drug ineffective for unapproved indication [Unknown]

NARRATIVE: CASE EVENT DATE: 2012
